FAERS Safety Report 7611463-2 (Version None)
Quarter: 2011Q3

REPORT INFORMATION
  Report Type: 
  Country: None (occurrence: None)
  Receive Date: 20110715
  Receipt Date: 20110714
  Transmission Date: 20111222
  Serious: Yes (Life-Threatening, Hospitalization)
  Sender: FDA-Public Use
  Company Number: US-B.I. PHARMACEUTICALS,INC./RIDGEFIELD-2011-BP-04740BP

PATIENT
  Sex: Female

DRUGS (12)
  1. MEVACOR [Concomitant]
     Dosage: 20 MG
  2. LISINOPRIL [Concomitant]
     Dosage: 40 MG
     Route: 048
  3. ACTOS [Concomitant]
     Dosage: 30 MG
     Route: 048
  4. PLAVIX [Concomitant]
  5. PRADAXA [Suspect]
     Indication: ATRIAL FLUTTER
  6. HYDROCHLOROTHIAZIDE [Concomitant]
  7. METOPROLOL TARTRATE [Concomitant]
  8. GLYBURIDE [Concomitant]
  9. METOPROLOL SUCCINATE EXTENDED RELEASE [Concomitant]
     Dosage: 50 MG
     Route: 048
  10. PRADAXA [Suspect]
     Indication: ATRIAL FIBRILLATION
     Dosage: 300 MG
     Route: 048
     Dates: start: 20110101, end: 20110215
  11. QUINAPRIL HCL [Concomitant]
  12. GLIPIZIDE [Concomitant]
     Dosage: 20 MG
     Route: 048

REACTIONS (3)
  - ANAEMIA [None]
  - CORONARY ARTERY DISEASE [None]
  - GASTROINTESTINAL HAEMORRHAGE [None]
